FAERS Safety Report 18367442 (Version 1)
Quarter: 2020Q4

REPORT INFORMATION
  Report Type: Spontaneous
  Country: US (occurrence: US)
  Receive Date: 20201009
  Receipt Date: 20201009
  Transmission Date: 20210114
  Serious: Yes (Other)
  Sender: FDA-Public Use
  Company Number: US-BAYER-2020-214796

PATIENT
  Age: 46 Year
  Sex: Female

DRUGS (1)
  1. LEVONORGESTREL IUS [UNKNOWN] [Suspect]
     Active Substance: LEVONORGESTREL
     Dosage: UNK
     Route: 015
     Dates: end: 20200612

REACTIONS (3)
  - Device breakage [Recovered/Resolved]
  - Complication associated with device [Recovered/Resolved]
  - Medical device pain [Recovered/Resolved]

NARRATIVE: CASE EVENT DATE: 20200612
